FAERS Safety Report 5972343-1 (Version None)
Quarter: 2008Q4

REPORT INFORMATION
  Report Type: 
  Country: None (occurrence: None)
  Receive Date: 20081201
  Receipt Date: 20081003
  Transmission Date: 20090506
  Serious: No
  Sender: FDA-Public Use
  Company Number: US-TEVA-178352USA

PATIENT

DRUGS (1)
  1. AZILECT [Suspect]
     Dosage: 1 DOSE

REACTIONS (1)
  - HAEMATURIA [None]
